FAERS Safety Report 5765533-4 (Version None)
Quarter: 2008Q2

REPORT INFORMATION
  Report Type: 
  Country: None (occurrence: None)
  Receive Date: 20080611
  Receipt Date: 20080605
  Transmission Date: 20081010
  Serious: Yes (Other)
  Sender: FDA-Public Use
  Company Number: IT-MERCK-0805ITA00019

PATIENT
  Age: 60 Year
  Sex: Male

DRUGS (7)
  1. PRIMAXIN [Suspect]
     Indication: OSTEOMYELITIS
     Route: 042
     Dates: start: 20080505, end: 20080507
  2. ALLOPURINOL [Concomitant]
     Route: 065
  3. TICLOPIDINE HYDROCHLORIDE [Concomitant]
     Route: 065
  4. OMEPRAZOLE [Concomitant]
     Route: 065
  5. ASPIRIN [Concomitant]
     Route: 065
  6. ENOXAPARIN SODIUM [Concomitant]
     Route: 065
  7. SEVELAMER HYDROCHLORIDE [Concomitant]
     Route: 065

REACTIONS (2)
  - CLONUS [None]
  - CONVULSION [None]
